FAERS Safety Report 11556852 (Version 1)
Quarter: 2015Q3

REPORT INFORMATION
  Report Type: Spontaneous
  Country: US (occurrence: US)
  Receive Date: 20150916
  Receipt Date: 20150916
  Transmission Date: 20151125
  Serious: No
  Sender: FDA-Public Use
  Company Number: US-ELI_LILLY_AND_COMPANY-US200806003510

PATIENT
  Age: 73 Year
  Sex: Female

DRUGS (4)
  1. CALTRATE [Concomitant]
     Active Substance: CALCIUM CARBONATE
  2. FORTEO [Suspect]
     Active Substance: TERIPARATIDE
     Dates: start: 2007
  3. LIPITOR [Concomitant]
     Active Substance: ATORVASTATIN CALCIUM
  4. VITAMIN D [Concomitant]
     Active Substance: CHOLECALCIFEROL

REACTIONS (2)
  - Wrist fracture [Recovering/Resolving]
  - Fall [Recovered/Resolved]

NARRATIVE: CASE EVENT DATE: 2008
